FAERS Safety Report 9167319 (Version 1)
Quarter: 2013Q1

REPORT INFORMATION
  Report Type: Spontaneous
  Country: US (occurrence: None)
  Receive Date: 20130314
  Receipt Date: 20130314
  Transmission Date: 20140127
  Serious: Yes (Hospitalization)
  Sender: FDA-Public Use
  Company Number: None

PATIENT
  Age: 50 Year
  Sex: Female

DRUGS (1)
  1. STIVARGA 40MG BAYER [Suspect]
     Indication: COLORECTAL CANCER
     Dosage: 4 QD PO  21 DAYS ON THEN 7 DAYS OFF?~ 2 WEEKS
     Route: 048

REACTIONS (5)
  - Blood pressure decreased [None]
  - Stomatitis [None]
  - Oedema peripheral [None]
  - Localised oedema [None]
  - Weight increased [None]
